FAERS Safety Report 11892078 (Version 1)
Quarter: 2016Q1

REPORT INFORMATION
  Report Type: Spontaneous
  Country: None (occurrence: None)
  Receive Date: 20160105
  Receipt Date: 20160105
  Transmission Date: 20160526
  Serious: No
  Sender: FDA-Public Use
  Company Number: None

PATIENT
  Age: 39 Year
  Sex: Female
  Weight: 52.16 kg

DRUGS (6)
  1. ALPRAZOLAM. [Concomitant]
     Active Substance: ALPRAZOLAM
  2. VALSARTAN. [Concomitant]
     Active Substance: VALSARTAN
  3. ENBREL [Concomitant]
     Active Substance: ETANERCEPT
  4. VITAMIN D3 [Concomitant]
     Active Substance: CHOLECALCIFEROL
  5. WOMEN^S MULTIVITAMIN [Concomitant]
  6. LOSARTAN. [Suspect]
     Active Substance: LOSARTAN
     Indication: HYPERTENSION
     Route: 048
     Dates: start: 20150724, end: 20160101

REACTIONS (1)
  - Alopecia [None]

NARRATIVE: CASE EVENT DATE: 20160104
